FAERS Safety Report 5150371-6 (Version None)
Quarter: 2006Q4

REPORT INFORMATION
  Report Type: 
  Country: None (occurrence: None)
  Receive Date: 20061114
  Receipt Date: 20061101
  Transmission Date: 20070319
  Serious: Yes (Other)
  Sender: FDA-Public Use
  Company Number: PHEH2006US13635

PATIENT
  Age: 77 Year
  Sex: Female

DRUGS (1)
  1. LOTREL [Suspect]
     Indication: HYPERTENSION
     Dosage: 10/20 MG, QD
     Route: 048
     Dates: start: 20040101, end: 20061001

REACTIONS (4)
  - COUGH [None]
  - DYSPHAGIA [None]
  - OESOPHAGEAL ULCER [None]
  - VAGINAL HAEMORRHAGE [None]
